FAERS Safety Report 7301150-2 (Version None)
Quarter: 2011Q1

REPORT INFORMATION
  Report Type: 
  Country: None (occurrence: None)
  Receive Date: 20110112
  Receipt Date: 20091209
  Transmission Date: 20110831
  Serious: Yes (Life-Threatening, Other)
  Sender: FDA-Public Use
  Company Number: THYM-1001320

PATIENT
  Age: 39 Year
  Sex: Female

DRUGS (10)
  1. WARFARIN SODIUM [Concomitant]
  2. METHYLPREDNISOLONE [Concomitant]
  3. THYMOGLOBULIN [Suspect]
     Indication: RENAL TRANSPLANT
     Dosage: INTRAVENOUS
     Route: 042
  4. AMLODIPINE BESYLATE [Concomitant]
  5. CISATRACURIUM (CISATRACURIUM) [Concomitant]
  6. CEFAZOLIN [Concomitant]
  7. FENTANYL [Concomitant]
  8. MIDAZOLAM HYDROCHLORIDE [Concomitant]
  9. LIDOCAINE (LIDOCAINE HYDROCHLORIDE) [Concomitant]
  10. PROPOFOL [Concomitant]

REACTIONS (1)
  - ANAPHYLACTIC SHOCK [None]
